FAERS Safety Report 7012852-X (Version None)
Quarter: 2010Q3

REPORT INFORMATION
  Report Type: 
  Country: None (occurrence: None)
  Receive Date: 20100922
  Receipt Date: 20100915
  Transmission Date: 20110219
  Serious: Yes (Hospitalization, Other)
  Sender: FDA-Public Use
  Company Number: 2010SP030338

PATIENT
  Age: 33 Year
  Sex: Female
  Weight: 89.3586 kg

DRUGS (1)
  1. NUVARING [Suspect]
     Indication: CONTRACEPTION
     Dates: start: 20060101, end: 20080710

REACTIONS (9)
  - ABORTION SPONTANEOUS [None]
  - BACK INJURY [None]
  - BACK PAIN [None]
  - DRUG EXPOSURE BEFORE PREGNANCY [None]
  - FALL [None]
  - GALLBLADDER DISORDER [None]
  - HYPOTHYROIDISM [None]
  - MESENTERIC VEIN THROMBOSIS [None]
  - PREGNANCY [None]
